FAERS Safety Report 6826033-3 (Version None)
Quarter: 2010Q3

REPORT INFORMATION
  Report Type: 
  Country: None (occurrence: None)
  Receive Date: 20100709
  Receipt Date: 20100630
  Transmission Date: 20110219
  Serious: Yes (Other)
  Sender: FDA-Public Use
  Company Number: IT-ASTRAZENECA-2010SE30666

PATIENT
  Sex: Female

DRUGS (3)
  1. ESOPRAL [Suspect]
     Route: 048
  2. NAPRILENE [Suspect]
     Route: 065
  3. METBAY [Suspect]
     Indication: TYPE 2 DIABETES MELLITUS
     Route: 048

REACTIONS (2)
  - ABDOMINAL PAIN [None]
  - URINARY TRACT INFECTION [None]
